FAERS Safety Report 17456335 (Version 1)
Quarter: 2020Q1

REPORT INFORMATION
  Report Type: Spontaneous
  Country: US (occurrence: US)
  Receive Date: 20200225
  Receipt Date: 20200225
  Transmission Date: 20200409
  Serious: Yes (Other)
  Sender: FDA-Public Use
  Company Number: None

PATIENT
  Age: 69 Year
  Sex: Female
  Weight: 81.9 kg

DRUGS (6)
  1. Q10 [Concomitant]
     Active Substance: UBIDECARENONE
  2. CINNEMON [Concomitant]
  3. CHROMEUM [Concomitant]
  4. IODINE. [Concomitant]
     Active Substance: IODINE
  5. JARDIANCE [Suspect]
     Active Substance: EMPAGLIFLOZIN
     Indication: DIABETES MELLITUS
     Dosage: ?          QUANTITY:1 TABLET(S);?
     Route: 048
     Dates: start: 20190808, end: 20191127
  6. TOUJEO [Concomitant]
     Active Substance: INSULIN GLARGINE

REACTIONS (14)
  - Dry skin [None]
  - Depression [None]
  - Product use complaint [None]
  - Product lot number issue [None]
  - Suicidal ideation [None]
  - Genital discomfort [None]
  - Vulval disorder [None]
  - Feeling of despair [None]
  - Haemorrhage [None]
  - Personality change [None]
  - Urine odour abnormal [None]
  - Hypotension [None]
  - Sleep disorder [None]
  - Blood cholesterol increased [None]

NARRATIVE: CASE EVENT DATE: 20191114
